FAERS Safety Report 8143980-3 (Version None)
Quarter: 2012Q1

REPORT INFORMATION
  Report Type: 
  Country: None (occurrence: None)
  Receive Date: 20120217
  Receipt Date: 20120210
  Transmission Date: 20120608
  Serious: Yes (Hospitalization)
  Sender: FDA-Public Use
  Company Number: US-SANOFI-AVENTIS-2012SA009272

PATIENT
  Sex: Male

DRUGS (2)
  1. SOLOSTAR [Suspect]
  2. LANTUS [Suspect]
     Route: 058

REACTIONS (3)
  - CARDIAC OPERATION [None]
  - POST PROCEDURAL COMPLICATION [None]
  - HYPERGLYCAEMIA [None]
